FAERS Safety Report 18128389 (Version 1)
Quarter: 2020Q3

REPORT INFORMATION
  Report Type: Spontaneous
  Country: FR (occurrence: FR)
  Receive Date: 20200810
  Receipt Date: 20200810
  Transmission Date: 20201103
  Serious: Yes (Other)
  Sender: FDA-Public Use
  Company Number: FR-AUROBINDO-AUR-APL-2017-21706

PATIENT
  Age: 2 Year
  Sex: Female
  Weight: 11 kg

DRUGS (5)
  1. WARFARIN [Interacting]
     Active Substance: WARFARIN
     Dosage: 25 MG, TOTAL/WEEK
     Route: 065
  2. WARFARIN [Interacting]
     Active Substance: WARFARIN
     Dosage: 5 MG, DAILY
     Route: 065
  3. AMIODARONE [Interacting]
     Active Substance: AMIODARONE
     Dosage: 250 MG/M2, DAILY
     Route: 065
  4. WARFARIN [Interacting]
     Active Substance: WARFARIN
     Indication: ANTICOAGULANT THERAPY
     Dosage: 2 MG, DAILY
     Route: 065
  5. AMIODARONE [Suspect]
     Active Substance: AMIODARONE
     Indication: ARRHYTHMIA SUPRAVENTRICULAR
     Dosage: 500 MG/M2, DAILY
     Route: 065

REACTIONS (2)
  - Therapeutic product effect increased [Recovered/Resolved]
  - Drug interaction [Recovered/Resolved]
